FAERS Safety Report 20428381 (Version 1)
Quarter: 2022Q1

REPORT INFORMATION
  Report Type: Spontaneous
  Country: GB (occurrence: GB)
  Receive Date: 20220204
  Receipt Date: 20220204
  Transmission Date: 20220423
  Serious: Yes (Death, Life-Threatening, Other)
  Sender: FDA-Public Use
  Company Number: GB-MHRA-EYC 00223787

PATIENT
  Age: 93 Year
  Sex: Female
  Weight: 45 kg

DRUGS (13)
  1. POLYETHYLENE GLYCOLS [Suspect]
     Active Substance: POLYETHYLENE GLYCOLS
     Indication: Product used for unknown indication
     Dosage: UNK
     Route: 065
  2. BUMETANIDE [Suspect]
     Active Substance: BUMETANIDE
     Indication: Rales
     Dosage: 5 MG, (INCREASED BUMETANIDE TO 4MG WENT DOWN TO 3MG AND THEN INCREASED TO 4MG AND THEN TO 5MG)
     Route: 048
     Dates: start: 20200601
  3. BUMETANIDE [Suspect]
     Active Substance: BUMETANIDE
     Indication: Gastrooesophageal reflux disease
  4. POLYETHYLENE GLYCOL 3350\POTASSIUM CHLORIDE\SODIUM BICARBONATE\SODIUM [Suspect]
     Active Substance: POLYETHYLENE GLYCOL 3350\POTASSIUM CHLORIDE\SODIUM BICARBONATE\SODIUM CHLORIDE
     Indication: Constipation
     Dosage: 13.13 MILLIGRAM, AS NECESSARY (5 MY BUMETANIDE LAXIDO OR COSMOLOGY GEL SATCHET AS REQUIRED)
     Route: 048
     Dates: start: 20200117, end: 20200601
  5. LANSOPRAZOLE [Suspect]
     Active Substance: LANSOPRAZOLE
     Indication: Gastrooesophageal reflux disease
     Dosage: 15 MILLIGRAM, IN DOSSET BOX
     Route: 065
  6. MORPHINE SULFATE [Concomitant]
     Active Substance: MORPHINE SULFATE
     Indication: Product used for unknown indication
     Dosage: UNK
     Route: 065
  7. CETIRIZINE [Concomitant]
     Active Substance: CETIRIZINE HYDROCHLORIDE
     Indication: Product used for unknown indication
     Dosage: UNK
     Route: 065
  8. ATORVASTATIN [Concomitant]
     Active Substance: ATORVASTATIN
     Indication: Product used for unknown indication
     Dosage: UNK
     Route: 065
  9. LEVOTHYROXINE SODIUM [Concomitant]
     Active Substance: LEVOTHYROXINE SODIUM
     Indication: Product used for unknown indication
     Dosage: UNK
     Route: 065
  10. BECLOMETHASONE\FORMOTEROL [Concomitant]
     Active Substance: BECLOMETHASONE\FORMOTEROL
     Indication: Product used for unknown indication
     Dosage: UNK
     Route: 065
  11. VENTOLIN [Concomitant]
     Active Substance: ALBUTEROL SULFATE
     Indication: Product used for unknown indication
     Dosage: UNK
     Route: 065
  12. CLOPIDOGREL [Concomitant]
     Active Substance: CLOPIDOGREL BISULFATE
     Indication: Product used for unknown indication
     Dosage: UNK
     Route: 065
  13. MINERALS\VITAMINS [Concomitant]
     Active Substance: MINERALS\VITAMINS
     Indication: Product used for unknown indication
     Dosage: UNK, SAINSBURY WOMANS MULTIVITAMINS AND MINERALS
     Route: 065

REACTIONS (9)
  - Death [Fatal]
  - Hypokalaemia [Unknown]
  - Rash [Unknown]
  - Confusional state [Unknown]
  - Hypernatraemia [Unknown]
  - Atrial fibrillation [Unknown]
  - Renal impairment [Unknown]
  - Pruritus [Unknown]
  - Malaise [Unknown]

NARRATIVE: CASE EVENT DATE: 20200529
